FAERS Safety Report 6874556-3 (Version None)
Quarter: 2010Q3

REPORT INFORMATION
  Report Type: 
  Country: None (occurrence: None)
  Receive Date: 20100722
  Receipt Date: 20100707
  Transmission Date: 20110219
  Serious: Yes (Other)
  Sender: FDA-Public Use
  Company Number: 2010RR-33423

PATIENT
  Age: 79 Year
  Sex: Male

DRUGS (7)
  1. GABAPENTIN [Suspect]
     Indication: MULTIPLE MYELOMA
     Dosage: 300 MG(300 MG, 1 IN 1 D)
     Route: 048
     Dates: end: 20100307
  2. GABAPENTIN [Suspect]
     Indication: PAIN
     Dosage: 100 MG (100 MG, 1 IN 1 D)
     Route: 048
     Dates: start: 20100224
  3. FENTANYL-75 [Concomitant]
  4. LISINOPRIL [Concomitant]
  5. FINASTERIDE [Concomitant]
  6. ATENOLOL [Concomitant]
  7. OMEPRAZOLE [Concomitant]

REACTIONS (2)
  - LEUKOPENIA [None]
  - THROMBOCYTOPENIA [None]
